FAERS Safety Report 5764543-0 (Version None)
Quarter: 2008Q2

REPORT INFORMATION
  Report Type: 
  Country: None (occurrence: None)
  Receive Date: 20080605
  Receipt Date: 20080529
  Transmission Date: 20081010
  Serious: Yes (Hospitalization)
  Sender: FDA-Public Use
  Company Number: CERZ-1000238

PATIENT
  Age: 12 Year
  Sex: Female

DRUGS (3)
  1. CEREZYME [Suspect]
     Indication: GAUCHER'S DISEASE
     Dosage: 60 U/KG, Q2W, INTRAVENOUS
     Route: 042
     Dates: start: 19970918
  2. UNSPECIFIED STEROID [Concomitant]
  3. BENADRYL [Concomitant]

REACTIONS (8)
  - ABDOMINAL SYMPTOM [None]
  - BRONCHOSPASM [None]
  - INFUSION RELATED REACTION [None]
  - PRURITUS [None]
  - RASH [None]
  - THROAT TIGHTNESS [None]
  - URTICARIA [None]
  - VASODILATATION [None]
